FAERS Safety Report 15882363 (Version 2)
Quarter: 2020Q2

REPORT INFORMATION
  Report Type: Spontaneous
  Country: CA (occurrence: CA)
  Receive Date: 20190129
  Receipt Date: 20200525
  Transmission Date: 20200713
  Serious: Yes (Hospitalization, Other)
  Sender: FDA-Public Use
  Company Number: CA-BAXTER-2019BAX001976

PATIENT
  Age: 73 Year
  Sex: Male

DRUGS (14)
  1. LOSEC [Concomitant]
     Active Substance: OMEPRAZOLE
     Indication: PRODUCT USED FOR UNKNOWN INDICATION
     Dosage: DOSAGE FORM: NOT SPECIFIED
     Route: 065
  2. TYLENOL [Concomitant]
     Active Substance: ACETAMINOPHEN
     Indication: PRODUCT USED FOR UNKNOWN INDICATION
     Dosage: DOSAGE FORM: NOT SPECIFIED
     Route: 065
  3. BENADRYL [Concomitant]
     Active Substance: DIPHENHYDRAMINE HYDROCHLORIDE
     Indication: PRODUCT USED FOR UNKNOWN INDICATION
     Dosage: DOSAGE FORM- NOT SPECIFIED
     Route: 065
  4. CHLORAMBUCIL [Suspect]
     Active Substance: CHLORAMBUCIL
     Dosage: DOSAGE FORM: NOT SPECIFIED
     Route: 048
  5. GAZYVA [Suspect]
     Active Substance: OBINUTUZUMAB
     Dosage: SINGLE DOSE VIAL, DOSAGE FORM- SOLUTION INTRAVENOUS
     Route: 042
  6. ASPIRIN. [Concomitant]
     Active Substance: ASPIRIN
     Indication: PRODUCT USED FOR UNKNOWN INDICATION
     Dosage: DOSAGE FORM: NOT SPECIFIED
     Route: 065
  7. GAZYVA [Suspect]
     Active Substance: OBINUTUZUMAB
     Dosage: SINGLE DOSE VIAL, DOSAGE FORM- SOLUTION INTRAVENOUS
     Route: 042
  8. PROCYTOX CYCLOPHOSPHAMIDE TAB50MG [Suspect]
     Active Substance: CYCLOPHOSPHAMIDE
     Indication: CHRONIC LYMPHOCYTIC LEUKAEMIA
     Dosage: DOSAGE FORM: NOT SPECIFIED
     Route: 048
  9. DIPHENHYDRAMINE. [Concomitant]
     Active Substance: DIPHENHYDRAMINE
     Indication: PRODUCT USED FOR UNKNOWN INDICATION
     Route: 065
  10. METOCLOPRAMIDE. [Concomitant]
     Active Substance: METOCLOPRAMIDE
     Indication: PRODUCT USED FOR UNKNOWN INDICATION
     Route: 065
  11. CHLORAMBUCIL [Suspect]
     Active Substance: CHLORAMBUCIL
     Indication: CHRONIC LYMPHOCYTIC LEUKAEMIA
     Dosage: DOSAGE FORM- NOT SPECIFIED
     Route: 048
  12. REACTINE [Concomitant]
     Indication: PRODUCT USED FOR UNKNOWN INDICATION
     Dosage: NOT SPECIFIED
     Route: 065
  13. 0.9% SODIUM CHLORIDE INJECTION [Suspect]
     Active Substance: SODIUM CHLORIDE
     Indication: PRODUCT USED FOR UNKNOWN INDICATION
     Dosage: DOSAGE FORM: SOLUTION INTRAVENOUS
     Route: 042
  14. GAZYVA [Suspect]
     Active Substance: OBINUTUZUMAB
     Indication: CHRONIC LYMPHOCYTIC LEUKAEMIA
     Route: 041

REACTIONS (1)
  - Pneumonia [Not Recovered/Not Resolved]
